FAERS Safety Report 21905312 (Version 3)
Quarter: 2023Q2

REPORT INFORMATION
  Report Type: Spontaneous
  Country: US (occurrence: None)
  Receive Date: 20230124
  Receipt Date: 20230605
  Transmission Date: 20230721
  Serious: No
  Sender: FDA-Public Use
  Company Number: 2023A007067

PATIENT
  Age: 22461 Day
  Sex: Female

DRUGS (1)
  1. BYDUREON BCISE [Suspect]
     Active Substance: EXENATIDE
     Indication: Type 2 diabetes mellitus
     Dosage: 2 MG, SUBCUTANEOUSLY, ONCE A WEEK
     Route: 058

REACTIONS (5)
  - Injection site indentation [Unknown]
  - Device use issue [Unknown]
  - Incorrect dose administered by device [Unknown]
  - Multiple use of single-use product [Unknown]
  - Device leakage [Unknown]

NARRATIVE: CASE EVENT DATE: 20230110
